FAERS Safety Report 20175337 (Version 1)
Quarter: 2021Q4

REPORT INFORMATION
  Report Type: Spontaneous
  Country: US (occurrence: None)
  Receive Date: 20211209
  Receipt Date: 20211209
  Transmission Date: 20220303
  Serious: Yes (Other)
  Sender: FDA-Public Use
  Company Number: None

PATIENT
  Age: 57 Year
  Sex: Female
  Weight: 108 kg

DRUGS (1)
  1. DEXAMETHASONE [Suspect]
     Active Substance: DEXAMETHASONE
     Indication: Pneumonitis
     Dosage: OTHER STRENGTH : OTHER;?OTHER QUANTITY : 1 TABLET(S);?FREQUENCY : EVERY 12 HOURS;?
     Route: 048
     Dates: start: 20210818, end: 20210907

REACTIONS (5)
  - Euphoric mood [None]
  - Confusional state [None]
  - Amnesia [None]
  - Speech disorder [None]
  - Psychotic disorder [None]

NARRATIVE: CASE EVENT DATE: 20210912
